FAERS Safety Report 11511623 (Version 1)
Quarter: 2015Q3

REPORT INFORMATION
  Report Type: Spontaneous
  Country: US (occurrence: US)
  Receive Date: 20150915
  Receipt Date: 20150915
  Transmission Date: 20151125
  Serious: Yes (Other)
  Sender: FDA-Public Use
  Company Number: US-TAKEDA-TPA2013A06958

PATIENT

DRUGS (9)
  1. TRADJENTA [Concomitant]
     Active Substance: LINAGLIPTIN
     Indication: DIABETES MELLITUS
     Dosage: 5 MG, QD
  2. ACTOS [Suspect]
     Active Substance: PIOGLITAZONE HYDROCHLORIDE
     Dosage: 45 MG, UNK
     Route: 048
     Dates: start: 200510, end: 200601
  3. METFORMIN [Concomitant]
     Active Substance: METFORMIN HYDROCHLORIDE
     Dosage: DURATION: MID TO LATE 1900S-2011, 1000 MG
  4. ACTOS [Suspect]
     Active Substance: PIOGLITAZONE HYDROCHLORIDE
     Dosage: 45 MG, UNK
     Route: 048
     Dates: start: 200610, end: 200901
  5. ACTOS [Suspect]
     Active Substance: PIOGLITAZONE HYDROCHLORIDE
     Dosage: 45 MG, UNK
     Route: 048
     Dates: start: 20100814, end: 20120131
  6. ACTOS [Suspect]
     Active Substance: PIOGLITAZONE HYDROCHLORIDE
     Dosage: 45 MG, UNK
     Route: 048
     Dates: start: 200901, end: 20100204
  7. REZULIN [Concomitant]
     Active Substance: TROGLITAZONE
     Dosage: DURATION: FOR A SHORT PERIOD IN THE LATE 1990S OR EARLY 2000S
  8. ACTOS [Suspect]
     Active Substance: PIOGLITAZONE HYDROCHLORIDE
     Indication: TYPE 2 DIABETES MELLITUS
     Dosage: 45 MG, UNK
     Route: 048
     Dates: start: 20040522, end: 200510
  9. GLUCOTROL [Concomitant]
     Active Substance: GLIPIZIDE
     Dosage: 5 MG, BID
     Dates: start: 2009

REACTIONS (1)
  - Bladder cancer [Not Recovered/Not Resolved]

NARRATIVE: CASE EVENT DATE: 201204
